FAERS Safety Report 9577086 (Version 1)
Quarter: 2013Q4

REPORT INFORMATION
  Report Type: Spontaneous
  Country: US (occurrence: US)
  Receive Date: 20131001
  Receipt Date: 20131001
  Transmission Date: 20140711
  Serious: No
  Sender: FDA-Public Use
  Company Number: US-AMGEN-USASP2013006313

PATIENT
  Sex: Female
  Weight: 73.92 kg

DRUGS (15)
  1. ENBREL [Suspect]
     Indication: ANKYLOSING SPONDYLITIS
     Dosage: 50 MG, QWK
     Route: 058
     Dates: end: 20130119
  2. CYMBALTA [Concomitant]
     Dosage: 20 MG, UNK
  3. ARTHROTEC [Concomitant]
     Dosage: 75 UNK, UNK
  4. LIPITOR [Concomitant]
     Dosage: 10 MG, UNK
  5. CLONAZEPAM [Concomitant]
     Dosage: 0.5 MG, UNK
  6. FISH OIL [Concomitant]
     Dosage: UNK
  7. CALCIUM [Concomitant]
     Dosage: 500 UNK, UNK
  8. VITAMIN C                          /00008001/ [Concomitant]
     Dosage: 500 MG, UNK
  9. B COMPLEX                          /00212701/ [Concomitant]
     Dosage: UNK
  10. MULTIVITAMINS, PLAIN [Concomitant]
     Dosage: UNK
  11. COQ-10 [Concomitant]
     Dosage: 150 MG, UNK
  12. VITAMIN A                          /00056001/ [Concomitant]
     Dosage: UNK
  13. CALCIUM MAGNESIUM [Concomitant]
     Dosage: UNK
  14. VITAMIN D                          /00107901/ [Concomitant]
     Dosage: 400 UNIT, UNK
  15. PROBIOTIC                          /06395501/ [Concomitant]
     Dosage: UNK

REACTIONS (2)
  - Tendon disorder [Unknown]
  - Ligament disorder [Unknown]
